FAERS Safety Report 17108853 (Version 1)
Quarter: 2019Q4

REPORT INFORMATION
  Report Type: Spontaneous
  Country: US (occurrence: US)
  Receive Date: 20191203
  Receipt Date: 20191203
  Transmission Date: 20200122
  Serious: No
  Sender: FDA-Public Use
  Company Number: US-VIFOR (INTERNATIONAL) INC.-VIT-2019-12710

PATIENT
  Age: 63 Year
  Sex: Male

DRUGS (11)
  1. AZELASTINE. [Concomitant]
     Active Substance: AZELASTINE HYDROCHLORIDE
  2. CYCLOBENZAPRINE. [Concomitant]
     Active Substance: CYCLOBENZAPRINE
  3. VELTASSA [Suspect]
     Active Substance: PATIROMER
     Indication: HYPERKALAEMIA
     Route: 048
     Dates: start: 20180925, end: 201910
  4. OMEPRAZOLE. [Concomitant]
     Active Substance: OMEPRAZOLE
  5. TRAMADOL. [Concomitant]
     Active Substance: TRAMADOL
  6. ASPIRIN. [Concomitant]
     Active Substance: ASPIRIN
  7. EFFIENT [Concomitant]
     Active Substance: PRASUGREL HYDROCHLORIDE
  8. METOPROLOL. [Concomitant]
     Active Substance: METOPROLOL
  9. LIPITOR [Concomitant]
     Active Substance: ATORVASTATIN CALCIUM
  10. NITROSTAT [Concomitant]
     Active Substance: NITROGLYCERIN
  11. TACROLIMUS. [Concomitant]
     Active Substance: TACROLIMUS

REACTIONS (2)
  - Renal disorder [Not Recovered/Not Resolved]
  - Inappropriate schedule of product administration [Unknown]

NARRATIVE: CASE EVENT DATE: 20180925
